FAERS Safety Report 25198845 (Version 1)
Quarter: 2025Q2

REPORT INFORMATION
  Report Type: Other
  Country: US (occurrence: US)
  Receive Date: 20250415
  Receipt Date: 20250415
  Transmission Date: 20250717
  Serious: Yes (Life-Threatening, Other)
  Sender: SPECTRA MEDICAL DEVICES
  Company Number: US-Spectra Medical Devices, LLC-2174926

PATIENT
  Age: 36 Year
  Sex: Female

DRUGS (7)
  1. LIDOCAINE HYDROCHLORIDE [Suspect]
     Active Substance: LIDOCAINE HYDROCHLORIDE
     Indication: Anaesthesia
  2. CLOMIPRAMINE [Interacting]
     Active Substance: CLOMIPRAMINE
  3. SUCCINYLCHOLINE [Concomitant]
     Active Substance: SUCCINYLCHOLINE
  4. GABAPENTIN [Concomitant]
     Active Substance: GABAPENTIN
  5. LITHIUM [Concomitant]
     Active Substance: LITHIUM
  6. KETAMINE [Concomitant]
     Active Substance: KETAMINE
  7. METHOHEXITAL [Concomitant]
     Active Substance: METHOHEXITAL

REACTIONS (2)
  - Status epilepticus [Recovered/Resolved]
  - Drug interaction [Unknown]
